FAERS Safety Report 6001708-7 (Version None)
Quarter: 2008Q4

REPORT INFORMATION
  Report Type: 
  Country: None (occurrence: None)
  Receive Date: 20081215
  Receipt Date: 20081119
  Transmission Date: 20090506
  Serious: No
  Sender: FDA-Public Use
  Company Number: US-B.I. PHARMACEUTICALS,INC./RIDGEFIELD-2008-BP-16599BP

PATIENT
  Sex: Female

DRUGS (6)
  1. ZANTAC 150 [Suspect]
     Indication: DYSPEPSIA
     Route: 048
     Dates: start: 20081001, end: 20081031
  2. BUPROPION HCL [Concomitant]
     Indication: DEPRESSION
     Dosage: 450MG
     Route: 048
  3. TOPROL-XL [Concomitant]
     Indication: HYPERTENSION
     Route: 048
  4. METATOPROL [Concomitant]
  5. CLONAZEPAM [Concomitant]
  6. LYBREL [Concomitant]

REACTIONS (3)
  - DYSPEPSIA [None]
  - PRURITUS [None]
  - RASH [None]
